FAERS Safety Report 10223613 (Version 1)
Quarter: 2014Q2

REPORT INFORMATION
  Report Type: Report from Study
  Country: CA (occurrence: CA)
  Receive Date: 20140609
  Receipt Date: 20140609
  Transmission Date: 20141212
  Serious: Yes (Other)
  Sender: FDA-Public Use
  Company Number: CA-UCBSA-2014000214

PATIENT
  Age: 52 Year
  Sex: Female

DRUGS (20)
  1. CERTOLIZUMAB PEGOL ASP [Suspect]
     Indication: ANKYLOSING SPONDYLITIS
     Dosage: 400 MG, EV 2 WEEKS(QOW)
     Route: 058
     Dates: start: 20140227, end: 20140327
  2. CERTOLIZUMAB PEGOL ASP [Suspect]
     Dosage: 400 MG, EV 2 WEEKS(QOW)
     Route: 058
     Dates: start: 20140424, end: 20140522
  3. METHOTREXATE [Concomitant]
     Indication: RHEUMATOID ARTHRITIS
     Dosage: 15 MG, WEEKLY (QW)
     Route: 048
  4. PREDNISONE [Concomitant]
     Indication: RHEUMATOID ARTHRITIS
     Dosage: 15 MG, ONCE DAILY (QD)
     Route: 048
  5. TAMOXIFEN [Concomitant]
     Indication: NEOPLASM MALIGNANT
     Dosage: DAILY
     Route: 048
  6. URSO [Concomitant]
     Dosage: DAILY
     Route: 048
  7. LOSARTAN [Concomitant]
     Dosage: DAILY
     Route: 048
  8. HYDROCHLOROTHIAZIDE [Concomitant]
     Dosage: DAILY
     Route: 048
  9. ASACOL [Concomitant]
     Dosage: DAILY
     Route: 048
  10. MODULON [Concomitant]
     Dosage: DAILY
     Route: 048
  11. FOLIC ACID [Concomitant]
     Indication: RHEUMATOID ARTHRITIS
     Dosage: 1 MG, ONCE DAILY (QD)
     Route: 048
  12. CALCIUM [Concomitant]
     Dosage: DAILY
     Route: 048
  13. VITAMIN D [Concomitant]
     Dosage: DAILY
     Route: 048
  14. IRON [Concomitant]
     Dosage: DAILY
     Route: 048
  15. SIMVASTATIN [Concomitant]
     Dosage: DAILY
     Route: 048
  16. RABEPRAZOLE [Concomitant]
     Dosage: DAILY
     Route: 048
  17. PULMICORT [Concomitant]
     Dosage: UNK, AS NEEDED (PRN).  ROUTE:PUFF
  18. VENTOLIN [Concomitant]
     Dosage: UNK, AS NEEDED (PRN).ROUTE: PUFF
  19. ETIDRONIC ACID [Concomitant]
     Dosage: DAILY (PART OF ETIDROCAL)
     Route: 048
  20. CALCIUM CARBONATE [Concomitant]
     Dosage: DAILY. (PART OF ETIDROCAL)
     Route: 048

REACTIONS (3)
  - Breast cancer metastatic [Not Recovered/Not Resolved]
  - Metastases to spine [None]
  - Metastases to bone [None]
